FAERS Safety Report 9832862 (Version 1)
Quarter: 2014Q1

REPORT INFORMATION
  Report Type: Spontaneous
  Country: ES (occurrence: DE)
  Receive Date: 20140121
  Receipt Date: 20140121
  Transmission Date: 20141002
  Serious: Yes (Hospitalization)
  Sender: FDA-Public Use
  Company Number: DE-FRI-1000052951

PATIENT
  Sex: 0

DRUGS (6)
  1. ACLIDINIUM [Suspect]
     Indication: CHRONIC OBSTRUCTIVE PULMONARY DISEASE
     Dosage: 2 DF
     Dates: start: 201302, end: 201309
  2. AMLODIPIN PLUS [Concomitant]
     Indication: HYPERTENSION
     Dosage: 2 DF
  3. LISINOPRIL 10 [Concomitant]
     Indication: HYPERTENSION
     Dosage: 1 DF
  4. LISINOPRIL 10 [Concomitant]
  5. SIMVASTATIN 40 [Concomitant]
     Indication: HYPERLIPIDAEMIA
  6. ASS [Concomitant]
     Indication: DIABETES MELLITUS
     Dosage: 1 DF

REACTIONS (1)
  - Supraventricular tachycardia [Recovered/Resolved]
